FAERS Safety Report 4626440-3 (Version None)
Quarter: 2005Q1

REPORT INFORMATION
  Report Type: 
  Country: None (occurrence: None)
  Receive Date: 20050330
  Receipt Date: 20050315
  Transmission Date: 20050727
  Serious: Yes (Life-Threatening, Hospitalization, Other)
  Sender: FDA-Public Use
  Company Number: USA041080856

PATIENT
  Age: 75 Year
  Sex: Female
  Weight: 70 kg

DRUGS (23)
  1. FORTEO [Suspect]
     Indication: OSTEOPOROSIS
     Dosage: 20 UG DAY
     Dates: start: 20041011, end: 20041207
  2. COUMADIN [Concomitant]
  3. BUMEX [Concomitant]
  4. CALTRATE (CALCIUM CARBONATE) [Concomitant]
  5. OYSTER SHELL CALCIUM (CALCIUM CARBONATE) [Concomitant]
  6. GERITOL [Concomitant]
  7. KLOR-CON [Concomitant]
  8. FIBER [Concomitant]
  9. LEVAQUIN [Concomitant]
  10. PROTONIX [Concomitant]
  11. ASPIRIN [Concomitant]
  12. IRON [Concomitant]
  13. PREDNISONE [Concomitant]
  14. MEVACOR [Concomitant]
  15. ALBUTEROL [Concomitant]
  16. CALCIUM GLUCONATE [Concomitant]
  17. DILTIAZEM [Concomitant]
  18. ISOSORBIDE [Concomitant]
  19. FOLIC ACID [Concomitant]
  20. PRILOSEC (OMEPRAZOLE RATIOPHARM) [Concomitant]
  21. DOXYCYCLINE [Concomitant]
  22. FLOVENT [Concomitant]
  23. ATROVENT [Concomitant]

REACTIONS (16)
  - BLOOD DISORDER [None]
  - BONE PAIN [None]
  - CARDIAC ARREST [None]
  - FEELING ABNORMAL [None]
  - HAEMORRHAGE [None]
  - INJECTION SITE DISCOLOURATION [None]
  - INJECTION SITE HAEMORRHAGE [None]
  - INJECTION SITE PAIN [None]
  - LOSS OF CONSCIOUSNESS [None]
  - MYOCARDIAL INFARCTION [None]
  - PHARMACEUTICAL PRODUCT COMPLAINT [None]
  - POST PROCEDURAL COMPLICATION [None]
  - RIB FRACTURE [None]
  - SKIN LACERATION [None]
  - STERNAL FRACTURE [None]
  - VENTRICULAR FIBRILLATION [None]
